FAERS Safety Report 20702721 (Version 1)
Quarter: 2022Q2

REPORT INFORMATION
  Report Type: Spontaneous
  Country: US (occurrence: US)
  Receive Date: 20220412
  Receipt Date: 20220412
  Transmission Date: 20220721
  Serious: No
  Sender: FDA-Public Use
  Company Number: US-JNJFOC-20220411592

PATIENT
  Sex: Male

DRUGS (1)
  1. IMODIUM MULTI-SYMPTOM RELIEF [Suspect]
     Active Substance: DIMETHICONE\LOPERAMIDE HYDROCHLORIDE
     Indication: Product used for unknown indication
     Dosage: ONE TABLET, AND THEN COUPLES OF HOUR LATER HE TOOK ANOTHER DOSE AND I THINK HE TOOK 4 OR 5 TABLETS
     Route: 048

REACTIONS (2)
  - Chest pain [Unknown]
  - Incorrect dose administered [Unknown]
